FAERS Safety Report 4339420-2 (Version None)
Quarter: 2004Q2

REPORT INFORMATION
  Report Type: 
  Country: None (occurrence: None)
  Receive Date: 20040412
  Receipt Date: 20040330
  Transmission Date: 20050107
  Serious: Yes (Other)
  Sender: FDA-Public Use
  Company Number: FR-JNJFOC-20040400037

PATIENT
  Sex: Male

DRUGS (1)
  1. REMICADE [Suspect]
     Indication: ANKYLOSING SPONDYLITIS
     Dosage: INTRAVENOUS
     Route: 042

REACTIONS (5)
  - COMPUTERISED TOMOGRAM ABNORMAL [None]
  - COUGH [None]
  - OBSTRUCTIVE AIRWAYS DISORDER [None]
  - SINUSITIS [None]
  - WHEEZING [None]
